FAERS Safety Report 9478160 (Version 1)
Quarter: 2013Q3

REPORT INFORMATION
  Report Type: Spontaneous
  Country: US (occurrence: None)
  Receive Date: 20130815
  Receipt Date: 20130815
  Transmission Date: 20140515
  Serious: Yes (Death, Hospitalization)
  Sender: FDA-Public Use
  Company Number: 2013PROUSA03056

PATIENT
  Age: 82 Year
  Sex: Male
  Weight: 91.6 kg

DRUGS (17)
  1. PROVENGE (SIPULEUCEL-T) SUSPENSION [Suspect]
     Indication: PROSTATE CANCER METASTATIC
     Dosage: 250 ML, SINGLE, INTRAVENOUS
     Route: 042
     Dates: start: 20130801, end: 20130801
  2. RAPAFLO (SILODOSIN) [Concomitant]
  3. METOPROLOL SUCCINATE (METOPROLOL SUCCINATE) [Concomitant]
  4. PRAVASTATIN SODIUM (PRAVASTATIN SODIUM) [Concomitant]
  5. AMLODIPINE BESYLATE (AMLODIPINE BESILATE) [Concomitant]
  6. DIOVAN (VALSARTAN) [Concomitant]
  7. ASPIRIN (ACETYLSALIYLIC ACID) [Concomitant]
  8. TAZORAC (TAZAROTENE) CREAM [Concomitant]
  9. TRAMADOL HCL [Concomitant]
  10. CITRACAL + D (CALCIUM CITRATE, ERGOCALCIFEROL) [Concomitant]
  11. OCUVITE LUTEIN (ASCORBIC ACID, CUPRIC OXIDE, TOCOPHERYL ACETATE, XANTOFYL, ZINC OXIDE) [Concomitant]
  12. ACETAMINOPHEN (PARACETAMOL) [Concomitant]
  13. BICALUTAMIDE (BICALUTAMIDE) [Concomitant]
  14. LUPRON DEPOT (LEUPRORELIN ACETATE) [Concomitant]
  15. OXYCODONE / ACETAMINOPHEN (OXYCODONE HYDROCHLORIDE, PARACETAMOL) [Concomitant]
  16. DENOSUMAB (DENOSUMAB) (RANMARK)) [Concomitant]
  17. MULTIVITAMINS (ASCORBIC ACID, ERGOCALCIFEROL, FOLIC ACID, NICOTINAMIDE, PANTHENOL, RETINOL, RIBOFLAVIN, THIAMINE HYDROCHLORIDE) [Concomitant]

REACTIONS (19)
  - Sepsis [None]
  - Ventricular tachycardia [None]
  - Myalgia [None]
  - Chills [None]
  - Nausea [None]
  - Vomiting [None]
  - Pyrexia [None]
  - Pain in extremity [None]
  - Nuchal rigidity [None]
  - Oxygen saturation decreased [None]
  - Sinus tachycardia [None]
  - Proteus test positive [None]
  - Electrocardiogram ST segment abnormal [None]
  - Bacterial infection [None]
  - Renal failure acute [None]
  - Hyponatraemia [None]
  - Thrombocytopenia [None]
  - Respiratory distress [None]
  - Blood pressure abnormal [None]
